FAERS Safety Report 4918566-1 (Version None)
Quarter: 2006Q1

REPORT INFORMATION
  Report Type: 
  Country: None (occurrence: None)
  Receive Date: 20060221
  Receipt Date: 20060221
  Transmission Date: 20060701
  Serious: Yes (Other)
  Sender: FDA-Public Use
  Company Number: None

PATIENT
  Sex: Female
  Weight: 77.1115 kg

DRUGS (2)
  1. CITALOPRAM   40 MG    DR. REDDY'S [Suspect]
     Indication: DEPRESSION
     Dosage: A TABLET   1X DAILY  PO
     Route: 048
     Dates: start: 20051201, end: 20060101
  2. CITALOPRAM   40 MG    DR. REDDY'S [Suspect]
     Indication: DEPRESSION
     Dosage: A TABLET   1X DAILY  PO
     Route: 048
     Dates: start: 20060201

REACTIONS (3)
  - DRUG INEFFECTIVE [None]
  - PHARMACEUTICAL PRODUCT COMPLAINT [None]
  - THERAPEUTIC RESPONSE UNEXPECTED WITH DRUG SUBSTITUTION [None]
